FAERS Safety Report 7944903-X (Version None)
Quarter: 2011Q4

REPORT INFORMATION
  Report Type: 
  Country: None (occurrence: None)
  Receive Date: 20111114
  Receipt Date: 20110908
  Transmission Date: 20120403
  Serious: No
  Sender: FDA-Public Use
  Company Number: 1000023672

PATIENT
  Age: 52 Year
  Sex: Female

DRUGS (8)
  1. SAVELLA [Suspect]
     Indication: FIBROMYALGIA
     Dosage: 25 MG BID (25 MG, 2 IN 1 D), ORAL, 50 MG BID (50 MG, 2 IN 1 D), ORAL
     Route: 048
     Dates: start: 20090101, end: 20090101
  2. SAVELLA [Suspect]
     Indication: FIBROMYALGIA
     Dosage: 25 MG BID (25 MG, 2 IN 1 D), ORAL, 50 MG BID (50 MG, 2 IN 1 D), ORAL
     Route: 048
     Dates: start: 20090101
  3. SAVELLA [Suspect]
     Indication: FIBROMYALGIA
     Dosage: 12.5 MG (12.5 MG, 1 IN 1 D), ORAL, 12.5 MG BID (12.5 MG, 2 IN 1 D), ORAL
     Route: 048
     Dates: start: 20090101, end: 20090101
  4. SAVELLA [Suspect]
     Indication: FIBROMYALGIA
     Dosage: 12.5 MG (12.5 MG, 1 IN 1 D), ORAL, 12.5 MG BID (12.5 MG, 2 IN 1 D), ORAL
     Route: 048
     Dates: start: 20090101, end: 20090101
  5. LEXAPRO (ESCITALOPRAM OXALATE) (TABLETS) (ESCITALOPRAM OXALATE) [Concomitant]
  6. SAVELLA [Suspect]
     Indication: FIBROMYALGIA
     Dosage: 100 MG BID (100 MG, 2 IN 1 D), ORAL, 150 MG, ORAL
     Route: 048
     Dates: end: 20110801
  7. SAVELLA [Suspect]
     Indication: FIBROMYALGIA
     Dosage: 100 MG BID (100 MG, 2 IN 1 D), ORAL, 150 MG, ORAL
     Route: 048
     Dates: end: 20110801
  8. HYDROCODONE (HYDROCODONE) (HYDROCODONE) [Concomitant]

REACTIONS (6)
  - AGEUSIA [None]
  - DECREASED APPETITE [None]
  - ANOSMIA [None]
  - PANIC DISORDER [None]
  - CONFUSIONAL STATE [None]
  - HYPERHIDROSIS [None]
